FAERS Safety Report 8662970 (Version 5)
Quarter: 2013Q4

REPORT INFORMATION
  Report Type: Spontaneous
  Country: US (occurrence: US)
  Receive Date: 20120712
  Receipt Date: 20131104
  Transmission Date: 20140711
  Serious: Yes (Hospitalization, Other)
  Sender: FDA-Public Use
  Company Number: US-009507513-1207USA001858

PATIENT
  Sex: Female
  Weight: 73.47 kg

DRUGS (5)
  1. FOSAMAX [Suspect]
     Indication: OSTEOPOROSIS PROPHYLAXIS
     Dosage: 10 MG, QD
     Route: 048
     Dates: start: 1998
  2. FOSAMAX [Suspect]
     Dosage: 70 MG, QW
     Route: 048
     Dates: end: 201101
  3. FOSAMAX PLUS D [Suspect]
     Indication: OSTEOPOROSIS PROPHYLAXIS
     Dosage: UNK
     Route: 048
  4. ALENDRONATE SODIUM [Suspect]
     Dosage: 70 MG, UNK
     Route: 048
  5. TAMOXIFEN CITRATE [Concomitant]
     Dosage: UNK
     Dates: start: 1997, end: 2007

REACTIONS (20)
  - Femur fracture [Unknown]
  - Intramedullary rod insertion [Unknown]
  - Squamous cell carcinoma [Unknown]
  - Knee arthroplasty [Unknown]
  - Atypical femur fracture [Recovering/Resolving]
  - Tooth extraction [Unknown]
  - Transfusion [Unknown]
  - Anaemia postoperative [Unknown]
  - Osteoporosis [Unknown]
  - Electrocardiogram ST-T change [Unknown]
  - Hypertension [Unknown]
  - Osteoarthritis [Unknown]
  - Arthritis [Unknown]
  - Hypokalaemia [Unknown]
  - Neuropathy peripheral [Unknown]
  - Chondropathy [Unknown]
  - Bone disorder [Unknown]
  - Osteopenia [Unknown]
  - Drug ineffective [Unknown]
  - Gastrooesophageal reflux disease [Unknown]
